FAERS Safety Report 8024627-3 (Version None)
Quarter: 2011Q4

REPORT INFORMATION
  Report Type: 
  Country: None (occurrence: None)
  Receive Date: 20111130
  Receipt Date: 20110811
  Transmission Date: 20120403
  Serious: Yes (Other)
  Sender: FDA-Public Use
  Company Number: PHEH2011US01201

PATIENT
  Age: 83 Year
  Sex: Female

DRUGS (10)
  1. KLOR-CON [Suspect]
     Dosage: 5 MG,1 EVERY OTHER DAY
  2. ALBUTEROL [Concomitant]
  3. OTHER INHALER [Concomitant]
  4. SINGULAIR [Concomitant]
  5. SYMBICORT [Concomitant]
  6. FUROSEMIDE [Suspect]
     Dosage: 20 MG, 1 EVERY OTHER DAY
  7. ATROVENT [Concomitant]
  8. TEKTURNA [Suspect]
     Indication: HYPERTENSION
     Dosage: 150 MG, QD
  9. POTASSIUM CHLORIDE [Concomitant]
  10. NITRO GLYCERIN (GLYCERYL TRINTRATE) [Concomitant]

REACTIONS (6)
  - DRUG INTOLERANCE [None]
  - BLOOD PRESSURE DIASTOLIC DECREASED [None]
  - FATIGUE [None]
  - HYPERTENSION [None]
  - MALAISE [None]
  - JOINT SWELLING [None]
